FAERS Safety Report 19676347 (Version 2)
Quarter: 2021Q3

REPORT INFORMATION
  Report Type: Spontaneous
  Country: JP (occurrence: JP)
  Receive Date: 20210809
  Receipt Date: 20210824
  Transmission Date: 20211014
  Serious: Yes (Other)
  Sender: FDA-Public Use
  Company Number: JP-SA-2021SA260348

PATIENT
  Sex: Female

DRUGS (10)
  1. FEBURIC [Concomitant]
     Active Substance: FEBUXOSTAT
     Dosage: UNK
  2. METGLUCO [Concomitant]
     Active Substance: METFORMIN HYDROCHLORIDE
     Dosage: UNK
  3. MYSLEE [Suspect]
     Active Substance: ZOLPIDEM TARTRATE
     Dosage: 5 MG, QD
     Route: 048
     Dates: start: 20210330, end: 20210730
  4. JUVELA [TOCOPHERYL ACETATE] [Concomitant]
     Active Substance: .ALPHA.-TOCOPHEROL ACETATE
     Dosage: UNK
  5. MOHRUS [Concomitant]
     Active Substance: KETOPROFEN
  6. MYSLEE [Suspect]
     Active Substance: ZOLPIDEM TARTRATE
     Dosage: 10 MG, ONCE DAILY
     Route: 048
  7. TENELIA [Concomitant]
     Active Substance: TENELIGLIPTIN
     Dosage: UNK
  8. OLMETEC [Concomitant]
     Active Substance: OLMESARTAN MEDOXOMIL
     Dosage: UNK
  9. MYSLEE [Suspect]
     Active Substance: ZOLPIDEM TARTRATE
     Indication: PRODUCT USED FOR UNKNOWN INDICATION
     Dosage: UNK UNK, UNKNOWN FREQ.
     Route: 048
  10. METHYCOBAL [Concomitant]
     Active Substance: METHYLCOBALAMIN
     Dosage: UNK

REACTIONS (1)
  - Angle closure glaucoma [Unknown]

NARRATIVE: CASE EVENT DATE: 20210729
